FAERS Safety Report 9316483 (Version 1)
Quarter: 2013Q2

REPORT INFORMATION
  Report Type: Spontaneous
  Country: TR (occurrence: TR)
  Receive Date: 20130530
  Receipt Date: 20130530
  Transmission Date: 20140414
  Serious: Yes (Other)
  Sender: FDA-Public Use
  Company Number: TR-ACCORD-017831

PATIENT
  Age: 36 Year
  Sex: Male

DRUGS (6)
  1. ALLOPURINOL [Suspect]
     Indication: BLOOD URIC ACID INCREASED
  2. ISONIAZID [Concomitant]
     Indication: DISSEMINATED TUBERCULOSIS
  3. RIFAMPICIN [Concomitant]
     Indication: DISSEMINATED TUBERCULOSIS
  4. PYRAZINAMIDE [Interacting]
     Indication: DISSEMINATED TUBERCULOSIS
  5. STREPTOMYCIN [Concomitant]
     Indication: DISSEMINATED TUBERCULOSIS
  6. ASPIRIN [Concomitant]
     Indication: PROPHYLAXIS

REACTIONS (2)
  - Blood uric acid increased [Recovered/Resolved]
  - Drug interaction [Unknown]
